FAERS Safety Report 15946402 (Version 1)
Quarter: 2019Q1

REPORT INFORMATION
  Report Type: Report from Study
  Country: US (occurrence: US)
  Receive Date: 20190212
  Receipt Date: 20190212
  Transmission Date: 20190417
  Serious: Yes (Other)
  Sender: FDA-Public Use
  Company Number: US-ROCHE-2261062

PATIENT
  Sex: Female

DRUGS (2)
  1. RITUXAN [Suspect]
     Active Substance: RITUXIMAB
     Indication: ARTERITIS
  2. RITUXAN [Suspect]
     Active Substance: RITUXIMAB
     Indication: GRANULOMATOSIS WITH POLYANGIITIS
     Dosage: 1000 MG DAY 1 AND DAY 15 EVERY 6 MONTHS
     Route: 042

REACTIONS (6)
  - Fatigue [Unknown]
  - Nausea [Unknown]
  - Cough [Unknown]
  - Dysgeusia [Unknown]
  - Back pain [Unknown]
  - Cerebrovascular accident [Unknown]
